FAERS Safety Report 8220200-2 (Version None)
Quarter: 2012Q1

REPORT INFORMATION
  Report Type: 
  Country: None (occurrence: None)
  Receive Date: 20120320
  Receipt Date: 20120307
  Transmission Date: 20120608
  Serious: Yes (Hospitalization)
  Sender: FDA-Public Use
  Company Number: US-BAYER-2012-023589

PATIENT
  Age: 30 Year
  Sex: Female

DRUGS (2)
  1. CIPROFLOXACIN [Concomitant]
     Route: 048
  2. YAZ [Suspect]
     Route: 048

REACTIONS (1)
  - PORTAL VEIN THROMBOSIS [None]
